FAERS Safety Report 4653790-7 (Version None)
Quarter: 2005Q2

REPORT INFORMATION
  Report Type: 
  Country: None (occurrence: None)
  Receive Date: 20050504
  Receipt Date: 20050422
  Transmission Date: 20051028
  Serious: Yes (Other)
  Sender: FDA-Public Use
  Company Number: 2005046821

PATIENT
  Age: 59 Year
  Sex: Female

DRUGS (2)
  1. CELEBREX [Suspect]
     Indication: SHOULDER PAIN
     Dosage: 200 MG
  2. THYROID TAB [Concomitant]

REACTIONS (2)
  - FEELING ABNORMAL [None]
  - SURGERY [None]
